FAERS Safety Report 12314734 (Version 1)
Quarter: 2016Q2

REPORT INFORMATION
  Report Type: Spontaneous
  Country: US (occurrence: US)
  Receive Date: 20160428
  Receipt Date: 20160428
  Transmission Date: 20160815
  Serious: Yes (Death)
  Sender: FDA-Public Use
  Company Number: US-BAYER-2016-078251

PATIENT
  Age: 0 Year
  Sex: Male

DRUGS (1)
  1. MIRENA [Suspect]
     Active Substance: LEVONORGESTREL
     Route: 064

REACTIONS (4)
  - Foetal exposure during pregnancy [None]
  - Low birth weight baby [None]
  - Foetal heart rate abnormal [Fatal]
  - Intrauterine infection [Fatal]

NARRATIVE: CASE EVENT DATE: 2013
